FAERS Safety Report 10463740 (Version 1)
Quarter: 2014Q3

REPORT INFORMATION
  Report Type: Spontaneous
  Country: EE (occurrence: EE)
  Receive Date: 20140919
  Receipt Date: 20140919
  Transmission Date: 20150326
  Serious: Yes (Death, Other)
  Sender: FDA-Public Use
  Company Number: EE-ROCHE-1464259

PATIENT
  Age: 69 Year
  Sex: Male
  Weight: 85 kg

DRUGS (5)
  1. CHLORAMBUCIL [Concomitant]
     Active Substance: CHLORAMBUCIL
     Indication: CHRONIC LYMPHOCYTIC LEUKAEMIA
     Route: 065
     Dates: start: 201405
  2. IMDUR [Concomitant]
     Active Substance: ISOSORBIDE MONONITRATE
  3. MABTHERA [Suspect]
     Active Substance: RITUXIMAB
     Indication: CHRONIC LYMPHOCYTIC LEUKAEMIA
     Route: 042
     Dates: start: 201405
  4. MABTHERA [Suspect]
     Active Substance: RITUXIMAB
     Dosage: INFUSION RATE 100 MG/H AND WAS CONTINUED WITH RATE 400 MG/H
     Route: 042
     Dates: start: 20140918
  5. MAREVAN [Concomitant]
     Active Substance: WARFARIN SODIUM

REACTIONS (3)
  - Malaise [Unknown]
  - Circulatory collapse [Unknown]
  - Myocardial infarction [Fatal]

NARRATIVE: CASE EVENT DATE: 20140918
